FAERS Safety Report 10184596 (Version 1)
Quarter: 2014Q2

REPORT INFORMATION
  Report Type: Spontaneous
  Country: AU (occurrence: AU)
  Receive Date: 20140521
  Receipt Date: 20140521
  Transmission Date: 20141212
  Serious: Yes (Hospitalization)
  Sender: FDA-Public Use
  Company Number: AU-ACCORD-023757

PATIENT
  Age: 47 Year
  Sex: Male

DRUGS (6)
  1. DEXAMETHASONE [Concomitant]
     Indication: VOMITING
     Route: 042
  2. ALLOPURINOL [Concomitant]
     Indication: PROPHYLAXIS
  3. IDARUBICIN [Suspect]
     Indication: ACUTE MYELOID LEUKAEMIA
     Dosage: ON DAYS 1-3
     Route: 040
  4. ETOPOSIDE [Suspect]
     Indication: ACUTE MYELOID LEUKAEMIA
     Dosage: AS AN INFUSION?OVER 30 MIN, ON DAYS 1-7
  5. TROPISETRON [Concomitant]
     Indication: VOMITING
     Route: 042
  6. CYTARABINE/CYTARABINE HYDROCHLORIDE/CYTARABINE OCFOSFATE [Suspect]
     Indication: ACUTE MYELOID LEUKAEMIA
     Dosage: INFUSION OVER 3 H,?ON DAYS 1,3,5,7.

REACTIONS (4)
  - Hypotension [Unknown]
  - Pulmonary function test decreased [Unknown]
  - Febrile neutropenia [Unknown]
  - Hyperbilirubinaemia [Recovered/Resolved]
